FAERS Safety Report 16768192 (Version 2)
Quarter: 2019Q4

REPORT INFORMATION
  Report Type: Spontaneous
  Country: IT (occurrence: IT)
  Receive Date: 20190903
  Receipt Date: 20191031
  Transmission Date: 20200122
  Serious: Yes (Life-Threatening, Hospitalization)
  Sender: FDA-Public Use
  Company Number: IT-JNJFOC-20190837305

PATIENT

DRUGS (1)
  1. XEPLION [Suspect]
     Active Substance: PALIPERIDONE PALMITATE
     Indication: PSYCHOTIC DISORDER
     Route: 030
     Dates: start: 20181022

REACTIONS (2)
  - Injection site abscess [Unknown]
  - Septic shock [Unknown]

NARRATIVE: CASE EVENT DATE: 201908
